FAERS Safety Report 23291446 (Version 2)
Quarter: 2024Q4

REPORT INFORMATION
  Report Type: Spontaneous
  Country: US (occurrence: US)
  Receive Date: 20231213
  Receipt Date: 20241217
  Transmission Date: 20250114
  Serious: No
  Sender: ALVOGEN
  Company Number: US-ALVOGEN-2023091373

PATIENT
  Sex: Female

DRUGS (13)
  1. FENTANYL [Suspect]
     Active Substance: FENTANYL
     Indication: Cancer pain
     Dosage: EXPIRATION DATE: JUL-2025. ?STRENGTH: 100 MCG/HR
     Dates: start: 202210
  2. GABAPENTIN [Suspect]
     Active Substance: GABAPENTIN
     Indication: Neuralgia
  3. MACROBID [Suspect]
     Active Substance: NITROFURANTOIN\NITROFURANTOIN MONOHYDRATE
     Indication: Renal impairment
  4. HCTG [Concomitant]
     Indication: Fluid retention
  5. FISH OIL\OMEGA-3 FATTY ACIDS [Concomitant]
     Active Substance: FISH OIL\OMEGA-3 FATTY ACIDS
     Indication: Blood cholesterol
  6. Vitamin D 50000 [Concomitant]
     Indication: Vitamin D deficiency
  7. TRINTELLIX [Concomitant]
     Active Substance: VORTIOXETINE HYDROBROMIDE
     Indication: Depression
  8. VALIUM [Concomitant]
     Active Substance: DIAZEPAM
     Indication: Anxiety
  9. MS CONTIN [Concomitant]
     Active Substance: MORPHINE SULFATE
     Indication: Pain
  10. PERCOCET [Concomitant]
     Active Substance: ACETAMINOPHEN\OXYCODONE HYDROCHLORIDE
     Indication: Pain
     Dosage: STRENGTH: 10/325 MG
  11. LOMOTIL [Concomitant]
     Active Substance: ATROPINE SULFATE\DIPHENOXYLATE HYDROCHLORIDE
     Indication: Diarrhoea
     Dosage: ONE TABLET EVERY 6 HOURS
  12. PHENERGAN [Concomitant]
     Active Substance: PROMETHAZINE HYDROCHLORIDE
     Indication: Nausea
     Dosage: EVERY 6 HOURS AS NEEDED.
  13. SANCUSO [Concomitant]
     Active Substance: GRANISETRON
     Indication: Nausea

REACTIONS (4)
  - Application site vesicles [Not Recovered/Not Resolved]
  - Device malfunction [Unknown]
  - Device adhesion issue [Unknown]
  - Off label use [Unknown]
